FAERS Safety Report 13747716 (Version 2)
Quarter: 2017Q3

REPORT INFORMATION
  Report Type: Spontaneous
  Country: US (occurrence: US)
  Receive Date: 20170712
  Receipt Date: 20170918
  Transmission Date: 20171127
  Serious: No
  Sender: FDA-Public Use
  Company Number: US-TEVA-786047ACC

PATIENT
  Age: 26 Year
  Sex: Female

DRUGS (11)
  1. VITAMIN B12 ER [Concomitant]
     Dosage: 1 DOSAGE FORMS DAILY;
     Route: 048
     Dates: start: 20130219
  2. COPAXONE [Suspect]
     Active Substance: GLATIRAMER ACETATE
     Dosage: UNKNOWN FORM STRENGTH
     Route: 065
  3. DICYCLOMINE HYDROCHLORIDE. [Concomitant]
     Active Substance: DICYCLOMINE HYDROCHLORIDE
     Indication: ABDOMINAL PAIN
     Dosage: TAKE ONE CAPSULE UP TO THREE TIMES DAILY IF NEEDED
     Route: 048
     Dates: start: 20170629
  4. GILENYA [Concomitant]
     Active Substance: FINGOLIMOD HYDROCHLORIDE
     Dosage: 1 DOSAGE FORMS DAILY; MAY TAKE WITH OR WITHOUTFOOD. STORE AT ROOM TEMPERATURE
     Route: 048
     Dates: start: 20141007
  5. COPAXONE [Suspect]
     Active Substance: GLATIRAMER ACETATE
  6. CLONAZEPAM. [Concomitant]
     Active Substance: CLONAZEPAM
     Dosage: TAKE 2 TABLET BEDTIME
     Route: 048
     Dates: start: 20120214
  7. VITAMIN D [Concomitant]
     Active Substance: CHOLECALCIFEROL
     Dosage: 1 DOSAGE FORMS DAILY;
     Route: 048
     Dates: start: 20130219
  8. LEVETIRACETAM. [Concomitant]
     Active Substance: LEVETIRACETAM
     Dosage: 2 DOSAGE FORMS DAILY;
     Route: 048
     Dates: start: 20141004
  9. CELEXA [Concomitant]
     Active Substance: CITALOPRAM HYDROBROMIDE
     Dosage: 1 DOSAGE FORMS DAILY;
     Route: 048
     Dates: start: 20130219
  10. ATROPINE W/DIPHENOXYLATE [Concomitant]
     Active Substance: ATROPINE\DIPHENOXYLATE
     Indication: DIARRHOEA
     Dosage: 2.5-0.025 MG;TAKE 1 TABLET AFTER EACH LOOSE STOOL NOT TO EXCEED 8 TABLETS PER DAY
     Route: 048
     Dates: start: 20170629
  11. MINASTRIN 24 FE 1-20 MG-MCG (24) [Concomitant]
     Route: 048
     Dates: start: 20160713

REACTIONS (2)
  - Drug hypersensitivity [Unknown]
  - Myalgia [Recovered/Resolved]

NARRATIVE: CASE EVENT DATE: 20090223
